FAERS Safety Report 9385830 (Version 8)
Quarter: 2014Q3

REPORT INFORMATION
  Report Type: Report from Study
  Country: US (occurrence: US)
  Receive Date: 20130705
  Receipt Date: 20140725
  Transmission Date: 20150326
  Serious: Yes (Congenital Anomaly)
  Sender: FDA-Public Use
  Company Number: US-009507513-1306USA010996

PATIENT
  Age: 1 Day
  Sex: Female
  Weight: 3.41 kg

DRUGS (4)
  1. PEGASYS [Suspect]
     Active Substance: PEGINTERFERON ALFA-2A
     Indication: HEPATITIS C
     Dosage: UNK
     Route: 064
     Dates: end: 201205
  2. REBETOL [Suspect]
     Active Substance: RIBAVIRIN
     Indication: HEPATITIS C
     Dosage: UNK
     Route: 064
     Dates: end: 201205
  3. ALBUTEROL. [Concomitant]
     Active Substance: ALBUTEROL
     Indication: ASTHMA
     Dosage: 2 PUFFS, PRN
     Route: 064
  4. VITAMINS (UNSPECIFIED) [Concomitant]
     Active Substance: VITAMINS
     Indication: PREGNANCY
     Route: 064

REACTIONS (7)
  - Atrial septal defect [Recovered/Resolved]
  - Atrial septal defect [Recovered/Resolved]
  - Congenital arterial malformation [Unknown]
  - Foetal exposure during pregnancy [Recovered/Resolved]
  - Jaundice [Unknown]
  - Congenital tongue anomaly [Unknown]
  - Vomiting [Unknown]

NARRATIVE: CASE EVENT DATE: 2013
